FAERS Safety Report 18647826 (Version 1)
Quarter: 2020Q4

REPORT INFORMATION
  Report Type: Other
  Country: GB (occurrence: GB)
  Receive Date: 20201222
  Receipt Date: 20201222
  Transmission Date: 20210114
  Serious: Yes (Hospitalization)
  Sender: FDA-Public Use
  Company Number: GB-EMCURE PHARMACEUTICALS LTD-2020-EPL-002287

PATIENT
  Age: 47 Year
  Sex: Female

DRUGS (7)
  1. SLIMBIOMI [Suspect]
     Active Substance: DIETARY SUPPLEMENT
     Indication: WEIGHT LOSS DIET
     Dosage: 3 DOSAGE FORM, 3 DOSE PER 1D, DIET SUPPLEMENT
     Route: 048
  2. COCODAMOL [Concomitant]
     Active Substance: ACETAMINOPHEN\CODEINE PHOSPHATE
  3. HYOSCINE BUTYLBROMIDE [Concomitant]
     Active Substance: BUTYLSCOPOLAMINE BROMIDE
  4. INDOMETACIN [Suspect]
     Active Substance: INDOMETHACIN
     Indication: PAIN
     Dosage: 100 MILLIGRAM, PER DAY
     Route: 048
  5. COLECALCIFEROL [Concomitant]
     Active Substance: CHOLECALCIFEROL
  6. MULTIVITAMIN [Concomitant]
     Active Substance: VITAMINS
  7. OMEPRAZOLE. [Concomitant]
     Active Substance: OMEPRAZOLE

REACTIONS (1)
  - Cardiac arrest [Not Recovered/Not Resolved]

NARRATIVE: CASE EVENT DATE: 20201128
